FAERS Safety Report 21657841 (Version 1)
Quarter: 2022Q4

REPORT INFORMATION
  Report Type: Spontaneous
  Country: US (occurrence: None)
  Receive Date: 20221128
  Receipt Date: 20221128
  Transmission Date: 20230113
  Serious: No
  Sender: FDA-Public Use
  Company Number: None

PATIENT
  Sex: Male
  Weight: 86.1 kg

DRUGS (2)
  1. DUPIXENT [Suspect]
     Active Substance: DUPILUMAB
     Indication: Asthma
     Dosage: FREQUENCY : EVERY OTHER WEEK;?
     Route: 058
     Dates: start: 20220909, end: 20221111
  2. PREDNISONE [Concomitant]
     Active Substance: PREDNISONE
     Dates: start: 20171016

REACTIONS (3)
  - Arthralgia [None]
  - Feeling abnormal [None]
  - Quality of life decreased [None]
